FAERS Safety Report 7887722-5 (Version None)
Quarter: 2011Q4

REPORT INFORMATION
  Report Type: 
  Country: None (occurrence: None)
  Receive Date: 20111103
  Receipt Date: 20111022
  Transmission Date: 20120403
  Serious: Yes (Hospitalization)
  Sender: FDA-Public Use
  Company Number: CN-PAR PHARMACEUTICAL, INC-2011SCPR003386

PATIENT

DRUGS (1)
  1. DIPHENOXYLATE HCL + ATROPINE SULFATE [Suspect]
     Indication: PRODUCT USED FOR UNKNOWN INDICATION
     Dosage: 24 DF, UNK
     Route: 048

REACTIONS (8)
  - COMA [None]
  - TOXIC ENCEPHALOPATHY [None]
  - FLUSHING [None]
  - ENCEPHALOMALACIA [None]
  - PYREXIA [None]
  - MYDRIASIS [None]
  - TOXICITY TO VARIOUS AGENTS [None]
  - CONVULSION [None]
